FAERS Safety Report 19525600 (Version 1)
Quarter: 2021Q3

REPORT INFORMATION
  Report Type: Spontaneous
  Country: US (occurrence: US)
  Receive Date: 20210713
  Receipt Date: 20210713
  Transmission Date: 20211014
  Serious: Yes (Hospitalization)
  Sender: FDA-Public Use
  Company Number: None

PATIENT
  Age: 19 Month
  Sex: Male
  Weight: 15.5 kg

DRUGS (5)
  1. DOXORUBICIN HYDROCHLORIDE. [Suspect]
     Active Substance: DOXORUBICIN HYDROCHLORIDE
     Dates: end: 20210528
  2. VINCRISTINE SULFATE. [Suspect]
     Active Substance: VINCRISTINE SULFATE
     Dates: end: 20210610
  3. 5?FLUOURACIL (5?FU) [Suspect]
     Active Substance: FLUOROURACIL
     Dates: end: 20210527
  4. ZINECARD [Suspect]
     Active Substance: DEXRAZOXANE HYDROCHLORIDE
     Dates: end: 20210528
  5. CISPLATIN. [Suspect]
     Active Substance: CISPLATIN
     Dates: end: 20210527

REACTIONS (3)
  - Pyrexia [None]
  - Pneumonia fungal [None]
  - Respiratory distress [None]

NARRATIVE: CASE EVENT DATE: 20210706
